FAERS Safety Report 21506969 (Version 4)
Quarter: 2022Q4

REPORT INFORMATION
  Report Type: Report from Study
  Country: US (occurrence: None)
  Receive Date: 20221026
  Receipt Date: 20221117
  Transmission Date: 20230113
  Serious: Yes (Hospitalization)
  Sender: FDA-Public Use
  Company Number: US-Eisai Medical Research-EC-2022-126442

PATIENT
  Age: 59 Year
  Sex: Male
  Weight: 66 kg

DRUGS (16)
  1. LENVATINIB [Suspect]
     Active Substance: LENVATINIB
     Indication: Hormone-refractory prostate cancer
     Route: 048
     Dates: start: 20220719, end: 20221010
  2. LENVATINIB [Suspect]
     Active Substance: LENVATINIB
     Indication: Prostate cancer metastatic
     Route: 048
     Dates: start: 20221101
  3. PEMBROLIZUMAB [Suspect]
     Active Substance: PEMBROLIZUMAB
     Indication: Hormone-refractory prostate cancer
     Route: 042
     Dates: start: 20220719, end: 20221011
  4. PEMBROLIZUMAB [Suspect]
     Active Substance: PEMBROLIZUMAB
     Indication: Prostate cancer metastatic
  5. FLOMAX [Concomitant]
     Active Substance: TAMSULOSIN HYDROCHLORIDE
     Dates: start: 20220412
  6. LIDODERM [Concomitant]
     Active Substance: LIDOCAINE
     Dates: start: 20211130
  7. ZOFRAN [Concomitant]
     Active Substance: ONDANSETRON HYDROCHLORIDE
     Dates: start: 20211019
  8. NORVASC [Concomitant]
     Active Substance: AMLODIPINE BESYLATE
     Dates: start: 20220823
  9. FLONASE [Concomitant]
     Active Substance: FLUTICASONE PROPIONATE
     Dates: start: 20220809
  10. PATANOL [Concomitant]
     Active Substance: OLOPATADINE HYDROCHLORIDE
     Dates: start: 20220809
  11. LEVOTHYROXINE SODIUM [Concomitant]
     Active Substance: LEVOTHYROXINE SODIUM
     Dates: start: 20220809
  12. CARMOL [UREA] [Concomitant]
     Dates: start: 20220830
  13. CHOLECALCIFEROL [Concomitant]
     Active Substance: CHOLECALCIFEROL
     Dates: start: 20220920
  14. MORPHINE [Concomitant]
     Active Substance: MORPHINE
     Dates: start: 20221018, end: 20221018
  15. COMPAZINE [Concomitant]
     Active Substance: PROCHLORPERAZINE MALEATE
     Dates: start: 20210719
  16. DEXTROSE [Concomitant]
     Active Substance: DEXTROSE
     Dates: start: 20221018, end: 20221018

REACTIONS (1)
  - Adrenal insufficiency [Recovering/Resolving]

NARRATIVE: CASE EVENT DATE: 20221018
